FAERS Safety Report 8059855-4 (Version None)
Quarter: 2012Q1

REPORT INFORMATION
  Report Type: 
  Country: None (occurrence: None)
  Receive Date: 20120120
  Receipt Date: 20120118
  Transmission Date: 20120608
  Serious: Yes (Other)
  Sender: FDA-Public Use
  Company Number: TR-BAYER-2012-005965

PATIENT
  Age: 66 Year
  Sex: Female
  Weight: 97 kg

DRUGS (2)
  1. NEXAVAR [Suspect]
     Indication: METASTASES TO LUNG
  2. NEXAVAR [Suspect]
     Indication: THYROID CANCER
     Dosage: 400 MG, BID
     Route: 048
     Dates: start: 20110819

REACTIONS (1)
  - HAEMOLYTIC ANAEMIA [None]
